FAERS Safety Report 24406804 (Version 1)
Quarter: 2024Q4

REPORT INFORMATION
  Report Type: Report from Study
  Country: US (occurrence: US)
  Receive Date: 20241007
  Receipt Date: 20241007
  Transmission Date: 20250114
  Serious: Yes (Life-Threatening, Other)
  Sender: PFIZER
  Company Number: US-PFIZER INC-PV202400128527

PATIENT
  Age: 21 Year
  Sex: Female

DRUGS (2)
  1. MISOPROSTOL [Suspect]
     Active Substance: MISOPROSTOL
     Indication: Abortion
     Dosage: 800 UG
     Route: 067
  2. MIFEPRISTONE [Suspect]
     Active Substance: MIFEPRISTONE
     Indication: Abortion
     Dosage: UNK

REACTIONS (1)
  - Coronary artery thrombosis [Recovered/Resolved]
